FAERS Safety Report 10044260 (Version 1)
Quarter: 2014Q1

REPORT INFORMATION
  Report Type: Report from Study
  Country: US (occurrence: US)
  Receive Date: 20140328
  Receipt Date: 20140328
  Transmission Date: 20141002
  Serious: Yes (Death)
  Sender: FDA-Public Use
  Company Number: US-SA-2014SA038630

PATIENT
  Sex: 0

DRUGS (4)
  1. CYCLOPHOSPHAMIDE [Suspect]
     Indication: STEM CELL TRANSPLANT
     Dosage: ON DAY -8 OR -7 BEFORE ALLO-SCT
     Route: 065
  2. FLUDARABINE PHOSPHATE [Suspect]
     Indication: STEM CELL TRANSPLANT
     Dosage: FROM DAY -6 TO -2
     Route: 042
  3. RITUXIMAB [Suspect]
     Indication: STEM CELL TRANSPLANT
     Dosage: ON DAY -8 OTR -7
     Route: 065
  4. THERAPEUTIC RADIOPHARMACEUTICALS [Concomitant]

REACTIONS (1)
  - Stevens-Johnson syndrome [Fatal]
